FAERS Safety Report 9437025 (Version 5)
Quarter: 2013Q4

REPORT INFORMATION
  Report Type: Spontaneous
  Country: US (occurrence: US)
  Receive Date: 20130802
  Receipt Date: 20131029
  Transmission Date: 20140711
  Serious: Yes (Other)
  Sender: FDA-Public Use
  Company Number: US-PERRIGO-13US002482

PATIENT
  Age: 53 Year
  Sex: Female
  Weight: 56.69 kg

DRUGS (1)
  1. PERMETHRIN 1% 955 [Suspect]
     Indication: PRURITUS
     Dosage: ONE APPLICATION , SINGLE
     Route: 061
     Dates: start: 20130220, end: 20130220

REACTIONS (12)
  - Vision blurred [Not Recovered/Not Resolved]
  - Nerve injury [Unknown]
  - Chemical injury [Not Recovered/Not Resolved]
  - Skin discolouration [Not Recovered/Not Resolved]
  - Periorbital oedema [Not Recovered/Not Resolved]
  - Skin fissures [Not Recovered/Not Resolved]
  - Skin wrinkling [Not Recovered/Not Resolved]
  - Accidental exposure to product [Recovered/Resolved]
  - Off label use [Recovered/Resolved]
  - Ocular hyperaemia [Unknown]
  - Emotional distress [Unknown]
  - Eye irritation [Not Recovered/Not Resolved]
